FAERS Safety Report 8371897-8 (Version None)
Quarter: 2012Q2

REPORT INFORMATION
  Report Type: 
  Country: None (occurrence: None)
  Receive Date: 20120518
  Receipt Date: 20120508
  Transmission Date: 20120825
  Serious: Yes (Other)
  Sender: FDA-Public Use
  Company Number: GB-ROCHE-1053553

PATIENT
  Sex: Male

DRUGS (1)
  1. BEVACIZUMAB [Suspect]
     Indication: DIABETIC RETINOPATHY
     Dosage: DOSE: 1.25 MG/0.05 ML
     Route: 050
     Dates: start: 20090223, end: 20120229

REACTIONS (3)
  - HYPOPYON [None]
  - VITRITIS [None]
  - IRIDOCYCLITIS [None]
